FAERS Safety Report 9632934 (Version 1)
Quarter: 2013Q4

REPORT INFORMATION
  Report Type: Spontaneous
  Country: IT (occurrence: IT)
  Receive Date: 20131018
  Receipt Date: 20131018
  Transmission Date: 20140711
  Serious: Yes (Other)
  Sender: FDA-Public Use
  Company Number: PHHY2013IT113113

PATIENT
  Sex: Female

DRUGS (4)
  1. VALPROIC ACID [Suspect]
     Indication: CONVULSION
  2. ACETAZOLAMIDE [Suspect]
  3. CLONAZEPAM [Suspect]
  4. ETHOSUXIMIDE [Suspect]

REACTIONS (27)
  - Autism [Unknown]
  - Altered state of consciousness [Unknown]
  - Convulsion [Recovered/Resolved]
  - Cognitive disorder [Recovering/Resolving]
  - Abnormal behaviour [Recovering/Resolving]
  - Psychomotor hyperactivity [Unknown]
  - Disturbance in attention [Unknown]
  - Speech disorder [Unknown]
  - Affective disorder [Unknown]
  - Circadian rhythm sleep disorder [Unknown]
  - Encopresis [Unknown]
  - Decreased eye contact [Unknown]
  - Visual impairment [Unknown]
  - Abulia [Unknown]
  - Perseveration [Unknown]
  - Neurological eyelid disorder [Unknown]
  - Affect lability [Unknown]
  - Learning disability [Unknown]
  - Psychiatric symptom [Unknown]
  - Dysprosody [Unknown]
  - Eye movement disorder [Unknown]
  - Self esteem inflated [Unknown]
  - Illusion [Unknown]
  - Disorientation [Unknown]
  - Enuresis [Unknown]
  - Restlessness [Unknown]
  - Drug ineffective [Unknown]
